FAERS Safety Report 10877851 (Version 1)
Quarter: 2015Q1

REPORT INFORMATION
  Report Type: Spontaneous
  Country: US (occurrence: None)
  Receive Date: 20150224
  Receipt Date: 20150224
  Transmission Date: 20150721
  Serious: No
  Sender: FDA-Public Use
  Company Number: None

PATIENT
  Sex: Female

DRUGS (2)
  1. METOPROLOL [Suspect]
     Active Substance: METOPROLOL
  2. HYDRALAZINE [Concomitant]
     Active Substance: HYDRALAZINE HYDROCHLORIDE

REACTIONS (27)
  - Asthenia [None]
  - Feeling cold [None]
  - Vision blurred [None]
  - Amnesia [None]
  - Constipation [None]
  - Abdominal pain upper [None]
  - Eye discharge [None]
  - Dizziness [None]
  - Muscular weakness [None]
  - Ocular icterus [None]
  - Sneezing [None]
  - Epistaxis [None]
  - Dry mouth [None]
  - Hallucination [None]
  - Wheezing [None]
  - Palpitations [None]
  - Deafness unilateral [None]
  - Peripheral coldness [None]
  - Arthralgia [None]
  - Depression [None]
  - Dry eye [None]
  - Nasal dryness [None]
  - Fatigue [None]
  - Mood altered [None]
  - Oropharyngeal pain [None]
  - Rhinorrhoea [None]
  - Chills [None]
